FAERS Safety Report 4295436-6 (Version None)
Quarter: 2004Q1

REPORT INFORMATION
  Report Type: 
  Country: None (occurrence: None)
  Receive Date: 20040212
  Receipt Date: 20040128
  Transmission Date: 20041129
  Serious: Yes (Hospitalization)
  Sender: FDA-Public Use
  Company Number: 191314

PATIENT
  Age: 34 Year
  Sex: Female

DRUGS (3)
  1. AVONEX [Suspect]
     Indication: MULTIPLE SCLEROSIS
     Dosage: 30 MCG QW; IM
     Route: 030
     Dates: start: 20031031, end: 20031101
  2. AMITRIPTYLINE HCL [Concomitant]
  3. BACLOFEN [Concomitant]

REACTIONS (3)
  - DYSSTASIA [None]
  - FATIGUE [None]
  - URINARY INCONTINENCE [None]
